FAERS Safety Report 10396923 (Version 2)
Quarter: 2014Q4

REPORT INFORMATION
  Report Type: Spontaneous
  Country: US (occurrence: US)
  Receive Date: 20140820
  Receipt Date: 20141111
  Transmission Date: 20150528
  Serious: No
  Sender: FDA-Public Use
  Company Number: US-UCBSA-2014008854

PATIENT
  Sex: Male
  Weight: 150 kg

DRUGS (1)
  1. KEPPRA [Suspect]
     Active Substance: LEVETIRACETAM
     Indication: SEIZURE
     Dosage: UNK
     Dates: end: 2012

REACTIONS (1)
  - Hostility [Recovered/Resolved]

NARRATIVE: CASE EVENT DATE: 2012
